FAERS Safety Report 17129314 (Version 1)
Quarter: 2019Q4

REPORT INFORMATION
  Report Type: Spontaneous
  Country: US (occurrence: US)
  Receive Date: 20191115
  Receipt Date: 20191115
  Transmission Date: 20200122
  Serious: Yes (Other)
  Sender: FDA-Public Use
  Company Number: None

PATIENT
  Age: 45 Year
  Sex: Female
  Weight: 76.5 kg

DRUGS (1)
  1. AMBIEN [Suspect]
     Active Substance: ZOLPIDEM TARTRATE
     Indication: INSOMNIA
     Dosage: ?          QUANTITY:1 TABLET(S);?
     Route: 048

REACTIONS (7)
  - Aggression [None]
  - Seizure [None]
  - Amnesia [None]
  - Non-24-hour sleep-wake disorder [None]
  - Intentional self-injury [None]
  - Impulsive behaviour [None]
  - Fall [None]

NARRATIVE: CASE EVENT DATE: 20160108
